FAERS Safety Report 20392849 (Version 4)
Quarter: 2022Q1

REPORT INFORMATION
  Report Type: Spontaneous
  Country: US (occurrence: US)
  Receive Date: 20220128
  Receipt Date: 20220211
  Transmission Date: 20220424
  Serious: Yes (Other)
  Sender: FDA-Public Use
  Company Number: US-GILEAD-2022-0566649

PATIENT
  Age: 49 Year
  Sex: Female
  Weight: 92.154 kg

DRUGS (19)
  1. EPCLUSA [Suspect]
     Active Substance: SOFOSBUVIR\VELPATASVIR
     Indication: Chronic hepatitis C
     Dosage: 2 DOSAGE FORM, QD
     Route: 065
     Dates: start: 20220101
  2. EPCLUSA [Suspect]
     Active Substance: SOFOSBUVIR\VELPATASVIR
     Dosage: 1 UNK
     Route: 048
  3. DEPAKOTE [Concomitant]
     Active Substance: DIVALPROEX SODIUM
  4. CLARITIN [Concomitant]
     Active Substance: LORATADINE
  5. PEPCID [Concomitant]
     Active Substance: FAMOTIDINE
  6. HALDOL [Concomitant]
     Active Substance: HALOPERIDOL
  7. VITAMINS NOS [Concomitant]
     Active Substance: VITAMINS
  8. METFORMIN [Concomitant]
     Active Substance: METFORMIN HYDROCHLORIDE
  9. SEROQUEL [Concomitant]
     Active Substance: QUETIAPINE FUMARATE
  10. LISINOPRIL [Concomitant]
     Active Substance: LISINOPRIL
  11. ALLEGRA D-12 HOUR [Concomitant]
     Active Substance: FEXOFENADINE HYDROCHLORIDE\PSEUDOEPHEDRINE HYDROCHLORIDE
  12. FLONASE [Concomitant]
     Active Substance: FLUTICASONE PROPIONATE
  13. ALPHA LIPOIC ACID [Concomitant]
     Active Substance: .ALPHA.-LIPOIC ACID
  14. B COMPLEX FORMULA 1 [Concomitant]
  15. DIVALPROEX SODIUM [Concomitant]
     Active Substance: DIVALPROEX SODIUM
  16. FAMOTIDINE [Concomitant]
     Active Substance: FAMOTIDINE
  17. HALOPERIDOL DECANOAT [Concomitant]
  18. METFORMIN HYDROCHLORIDE [Concomitant]
     Active Substance: METFORMIN HYDROCHLORIDE
  19. QUETIAPINE FUMARATE [Concomitant]
     Active Substance: QUETIAPINE FUMARATE

REACTIONS (2)
  - Blood glucose increased [Recovered/Resolved]
  - Overdose [Recovered/Resolved]
